FAERS Safety Report 12657660 (Version 1)
Quarter: 2016Q3

REPORT INFORMATION
  Report Type: Spontaneous
  Country: AU (occurrence: AU)
  Receive Date: 20160816
  Receipt Date: 20160816
  Transmission Date: 20161109
  Serious: Yes (Other)
  Sender: FDA-Public Use
  Company Number: AU-ELI_LILLY_AND_COMPANY-AU201608004168

PATIENT
  Sex: Male

DRUGS (2)
  1. AXIRON [Suspect]
     Active Substance: TESTOSTERONE
     Indication: PRODUCT USED FOR UNKNOWN INDICATION
     Route: 065
  2. AXIRON [Suspect]
     Active Substance: TESTOSTERONE
     Route: 065

REACTIONS (3)
  - Haematuria [Recovered/Resolved]
  - Haematospermia [Recovered/Resolved]
  - Haematochezia [Recovered/Resolved]
